FAERS Safety Report 7885998-1 (Version None)
Quarter: 2011Q4

REPORT INFORMATION
  Report Type: 
  Country: None (occurrence: None)
  Receive Date: 20111102
  Receipt Date: 20110705
  Transmission Date: 20120403
  Serious: No
  Sender: FDA-Public Use
  Company Number: US-AMGEN-USASP2011034058

PATIENT
  Age: 43 Year
  Sex: Female

DRUGS (5)
  1. SYNTHROID [Concomitant]
     Dosage: 100 MUG, UNK
     Route: 048
  2. IBUPROFEN [Concomitant]
     Dosage: 800 MG, UNK
  3. METHOTREXATE [Concomitant]
  4. ENBREL [Suspect]
     Indication: PRODUCT USED FOR UNKNOWN INDICATION
     Dosage: 50 MG, QWK
  5. PREVACID [Concomitant]
     Dosage: 15 MG, UNK

REACTIONS (2)
  - MYALGIA [None]
  - GAIT DISTURBANCE [None]
